FAERS Safety Report 9331803 (Version 2)
Quarter: 2013Q2

REPORT INFORMATION
  Report Type: Spontaneous
  Country: US (occurrence: None)
  Receive Date: 20130603
  Receipt Date: 20130610
  Transmission Date: 20140414
  Serious: Yes (Hospitalization)
  Sender: FDA-Public Use
  Company Number: 2013-0870

PATIENT
  Age: 60 Year
  Sex: Male

DRUGS (3)
  1. KYPROLIS (CARFILZOMIB) (INJECTION FOR INFUSION) (CARFILZOMIB) [Suspect]
     Indication: PLASMA CELL MYELOMA
     Dosage: (2 IN 1 WK)
     Route: 042
     Dates: start: 20130228, end: 20130415
  2. COUMADIN (WARFARIN SODIUM) (WARFARIN SODIUM) [Concomitant]
  3. ANTIHYPERTENSIVE [Concomitant]

REACTIONS (22)
  - Hypokalaemia [None]
  - Platelet count decreased [None]
  - Nausea [None]
  - Vomiting [None]
  - Irritability [None]
  - Hypertension [None]
  - Fall [None]
  - Blood potassium decreased [None]
  - Confusional state [None]
  - Hyponatraemia [None]
  - Eyelid ptosis [None]
  - Herpes zoster [None]
  - Balance disorder [None]
  - Rash [None]
  - Gait disturbance [None]
  - Headache [None]
  - Dyspnoea [None]
  - Muscular weakness [None]
  - Muscular weakness [None]
  - Muscle spasms [None]
  - Dizziness [None]
  - Diplopia [None]
